FAERS Safety Report 7151479-6 (Version None)
Quarter: 2010Q4

REPORT INFORMATION
  Report Type: 
  Country: None (occurrence: None)
  Receive Date: 20101210
  Receipt Date: 20101123
  Transmission Date: 20110411
  Serious: No
  Sender: FDA-Public Use
  Company Number: US-PFIZER INC-2010158295

PATIENT
  Age: 43 Year
  Sex: Female

DRUGS (3)
  1. ADVIL COLD AND SINUS [Suspect]
     Indication: SEASONAL ALLERGY
     Dosage: 2 LIQUIGELS TID
     Route: 048
     Dates: start: 20101113, end: 20101116
  2. ADVIL COLD AND SINUS [Suspect]
     Indication: SINUS HEADACHE
  3. VITAMINS [Concomitant]

REACTIONS (1)
  - DRUG INEFFECTIVE [None]
